FAERS Safety Report 4460356-0 (Version None)
Quarter: 2004Q3

REPORT INFORMATION
  Report Type: 
  Country: None (occurrence: None)
  Receive Date: 20040928
  Receipt Date: 20040402
  Transmission Date: 20050211
  Serious: No
  Sender: FDA-Public Use
  Company Number: US-GLAXOSMITHKLINE-A0505694A

PATIENT
  Sex: Male

DRUGS (1)
  1. SEREVENT [Suspect]
     Route: 055

REACTIONS (2)
  - DIZZINESS [None]
  - VISION BLURRED [None]
